FAERS Safety Report 12554272 (Version 2)
Quarter: 2016Q3

REPORT INFORMATION
  Report Type: Report from Study
  Country: US (occurrence: US)
  Receive Date: 20160713
  Receipt Date: 20160727
  Transmission Date: 20161109
  Serious: Yes (Death, Hospitalization)
  Sender: FDA-Public Use
  Company Number: US-ACTELION-A-NJ2015-125391

PATIENT
  Age: 68 Year
  Sex: Female

DRUGS (3)
  1. VENTAVIS [Suspect]
     Active Substance: ILOPROST
     Indication: PULMONARY ARTERIAL HYPERTENSION
     Dosage: 5 MCG, 6-9X/DAY
     Route: 055
     Dates: start: 20120409, end: 20160722
  2. TRACLEER [Suspect]
     Active Substance: BOSENTAN
     Indication: PULMONARY ARTERIAL HYPERTENSION
     Dosage: 125 MG, BID
     Route: 048
     Dates: start: 20110826
  3. OPSUMIT [Suspect]
     Active Substance: MACITENTAN
     Indication: PULMONARY ARTERIAL HYPERTENSION
     Dosage: 10 MG, QD
     Route: 048
     Dates: start: 20160714

REACTIONS (8)
  - Aspiration pleural cavity [Unknown]
  - Dyspnoea [Unknown]
  - Pleural effusion [Unknown]
  - Diarrhoea [Unknown]
  - Death [Fatal]
  - Pulmonary oedema [Unknown]
  - Fluid retention [Unknown]
  - Chest pain [Unknown]

NARRATIVE: CASE EVENT DATE: 20160722
